FAERS Safety Report 20485816 (Version 2)
Quarter: 2022Q3

REPORT INFORMATION
  Report Type: Spontaneous
  Country: US (occurrence: None)
  Receive Date: 20220217
  Receipt Date: 20220906
  Transmission Date: 20221027
  Serious: Yes (Other)
  Sender: FDA-Public Use
  Company Number: 2022A066546

PATIENT
  Age: 49 Year
  Sex: Female
  Weight: 90 kg

DRUGS (45)
  1. NEXIUM [Suspect]
     Active Substance: ESOMEPRAZOLE MAGNESIUM
     Indication: Gastrooesophageal reflux disease
     Dates: start: 2005, end: 2013
  2. PRILOSEC [Suspect]
     Active Substance: OMEPRAZOLE MAGNESIUM
     Indication: Gastrooesophageal reflux disease
     Route: 048
     Dates: start: 1989, end: 2017
  3. PRILOSEC OTC [Suspect]
     Active Substance: OMEPRAZOLE MAGNESIUM
     Indication: Gastrooesophageal reflux disease
     Route: 048
     Dates: start: 2005, end: 2017
  4. PREVACID [Suspect]
     Active Substance: LANSOPRAZOLE
     Indication: Gastrooesophageal reflux disease
     Route: 048
     Dates: start: 2005, end: 2017
  5. PREVACID 24 HR [Suspect]
     Active Substance: LANSOPRAZOLE
     Indication: Gastrooesophageal reflux disease
     Route: 048
     Dates: start: 2009, end: 2017
  6. PROTONIX [Suspect]
     Active Substance: PANTOPRAZOLE SODIUM
     Indication: Gastrooesophageal reflux disease
     Route: 048
  7. LISINOPRIL [Concomitant]
     Active Substance: LISINOPRIL
  8. HYDROCHLOROTHIAZIDE [Concomitant]
     Active Substance: HYDROCHLOROTHIAZIDE
  9. AZITHROMYCIN [Concomitant]
     Active Substance: AZITHROMYCIN
  10. AMOXICILLIN [Concomitant]
     Active Substance: AMOXICILLIN
  11. FLUXID [Concomitant]
     Active Substance: FAMOTIDINE
  12. NIZATIDINE [Concomitant]
     Active Substance: NIZATIDINE
  13. PEPCID [Concomitant]
     Active Substance: FAMOTIDINE
  14. ZENTAC (OTC) [Concomitant]
  15. RANITIDINE [Concomitant]
     Active Substance: RANITIDINE
  16. ROLAIDS [Concomitant]
     Active Substance: CALCIUM CARBONATE\MAGNESIUM HYDROXIDE
  17. TUMS [Concomitant]
     Active Substance: CALCIUM CARBONATE
  18. PREDNISONE [Concomitant]
     Active Substance: PREDNISONE
  19. BENZONATATE [Concomitant]
     Active Substance: BENZONATATE
  20. BALSALAZIDE [Concomitant]
     Active Substance: BALSALAZIDE
  21. LORATADINE [Concomitant]
     Active Substance: LORATADINE
  22. ACYCLOVIR [Concomitant]
     Active Substance: ACYCLOVIR
  23. ALPRAZOLAM [Concomitant]
     Active Substance: ALPRAZOLAM
  24. PHENAZOPYRID [Concomitant]
  25. VOLTAREN [Concomitant]
     Active Substance: DICLOFENAC SODIUM
  26. CARISOPRODOL [Concomitant]
     Active Substance: CARISOPRODOL
  27. TIZANIDINE [Concomitant]
     Active Substance: TIZANIDINE
  28. DICLOFENAC [Concomitant]
     Active Substance: DICLOFENAC
  29. POTASSIUM CHLORIDE [Concomitant]
     Active Substance: POTASSIUM CHLORIDE
  30. VITAMIN D3 [Concomitant]
     Active Substance: CHOLECALCIFEROL
  31. AMOXICILLIN\CLAVULANATE POTASSIUM [Concomitant]
     Active Substance: AMOXICILLIN\CLAVULANATE POTASSIUM
  32. SULFASALAZINE [Concomitant]
     Active Substance: SULFASALAZINE
  33. CARISOPRODOL [Concomitant]
     Active Substance: CARISOPRODOL
  34. METHYLPREDNISOLONE [Concomitant]
     Active Substance: METHYLPREDNISOLONE
  35. LORATADINE [Concomitant]
     Active Substance: LORATADINE
  36. SULFASALAZINE DELAYED-RELEASE [Concomitant]
     Active Substance: SULFASALAZINE
  37. FLUOXETINE [Concomitant]
     Active Substance: FLUOXETINE HYDROCHLORIDE
  38. ASACOL [Concomitant]
     Active Substance: MESALAMINE
  39. IRON [Concomitant]
     Active Substance: IRON
  40. FERRIC POLYSACCHARIDE COMPLEX [Concomitant]
     Active Substance: FERRIC POLYSACCHARIDE COMPLEX
  41. TRIAMCINOLONE [Concomitant]
     Active Substance: TRIAMCINOLONE
  42. SEROQUEL [Concomitant]
     Active Substance: QUETIAPINE FUMARATE
  43. TRAZODONE [Concomitant]
     Active Substance: TRAZODONE HYDROCHLORIDE
  44. CLARITIN-D 24 HOUR [Concomitant]
     Active Substance: LORATADINE\PSEUDOEPHEDRINE SULFATE
  45. PROMETHAZINE [Concomitant]
     Active Substance: PROMETHAZINE HYDROCHLORIDE

REACTIONS (1)
  - Chronic kidney disease [Unknown]

NARRATIVE: CASE EVENT DATE: 20170101
